FAERS Safety Report 6035184-5 (Version None)
Quarter: 2009Q1

REPORT INFORMATION
  Report Type: 
  Country: None (occurrence: None)
  Receive Date: 20090109
  Receipt Date: 20081231
  Transmission Date: 20090719
  Serious: Yes (Death, Hospitalization)
  Sender: FDA-Public Use
  Company Number: GXKR2008GB12355

PATIENT
  Age: 95 Year
  Sex: Male

DRUGS (3)
  1. ACETYLSALICYLIC ACID SRT [Suspect]
  2. ENOXAPARIN SODIUM [Suspect]
     Indication: CORONARY ARTERY DISEASE
     Dosage: 1 MG/KG
  3. CLOPIDOGREL [Suspect]

REACTIONS (3)
  - HAEMOGLOBIN DECREASED [None]
  - PRODUCT QUALITY ISSUE [None]
  - PULMONARY HAEMORRHAGE [None]
